FAERS Safety Report 7902855-2 (Version None)
Quarter: 2011Q4

REPORT INFORMATION
  Report Type: 
  Country: None (occurrence: None)
  Receive Date: 20111107
  Receipt Date: 20111026
  Transmission Date: 20120403
  Serious: Yes (Other)
  Sender: FDA-Public Use
  Company Number: LEO-2011-00916

PATIENT
  Age: 63 Year
  Sex: Female

DRUGS (7)
  1. AMOXICILLIN [Suspect]
     Indication: PROPHYLACTIC CHEMOTHERAPY
     Dosage: 2 GM (2 GM), ORAL
     Route: 048
     Dates: start: 20110913
  2. VELCADE [Suspect]
     Indication: CHEMOTHERAPY
     Dosage: 1.3 MG/M2, SUBCUTANEOUS
     Route: 058
     Dates: start: 20110913
  3. BACTRIM DS [Suspect]
     Indication: PROPHYLACTIC CHEMOTHERAPY
     Dosage: (3 DOSAGE FORMS), ORAL
     Route: 048
     Dates: start: 20110913, end: 20110923
  4. VALACYCLOVIR HYDROCHLORIDE [Suspect]
     Indication: PROPHYLACTIC CHEMOTHERAPY
     Dosage: 1000 MG (500 MG, 2 IN 1 D), ORAL
     Route: 048
     Dates: start: 20110913
  5. DEXAMETHASONE [Suspect]
     Indication: CHEMOTHERAPY
  6. INNOHEP [Suspect]
     Indication: THROMBOSIS PROPHYLAXIS
     Dosage: 4500 IU (4500 IU), SUBCUTANEOUS
     Route: 058
     Dates: start: 20110913
  7. REVLIMID [Suspect]
     Indication: CHEMOTHERAPY
     Dosage: 25 MG (25 MG, 1 IN 1 D), ORAL
     Route: 048
     Dates: start: 20110913

REACTIONS (4)
  - RASH GENERALISED [None]
  - CYTOLYTIC HEPATITIS [None]
  - MUSCLE TIGHTNESS [None]
  - PRURITUS [None]
